FAERS Safety Report 7398516-1 (Version None)
Quarter: 2011Q2

REPORT INFORMATION
  Report Type: 
  Country: None (occurrence: None)
  Receive Date: 20110407
  Receipt Date: 20110330
  Transmission Date: 20111010
  Serious: No
  Sender: FDA-Public Use
  Company Number: US-BIOGENIDEC-2010BI029145

PATIENT
  Age: 40 Year
  Sex: Female

DRUGS (1)
  1. TYSABRI [Suspect]
     Indication: MULTIPLE SCLEROSIS
     Route: 042
     Dates: start: 20100820, end: 20100820

REACTIONS (6)
  - HYPERSENSITIVITY [None]
  - RASH [None]
  - TREMOR [None]
  - ERYTHEMA [None]
  - URTICARIA [None]
  - PRURITUS [None]
